FAERS Safety Report 9114683 (Version 1)
Quarter: 2013Q1

REPORT INFORMATION
  Report Type: Spontaneous
  Country: US (occurrence: None)
  Receive Date: 20130220
  Receipt Date: 20130220
  Transmission Date: 20140127
  Serious: Yes (Life-Threatening, Hospitalization)
  Sender: FDA-Public Use
  Company Number: None

PATIENT
  Sex: 0

DRUGS (2)
  1. PEPCID [Suspect]
     Route: 042
  2. MORPHINE [Concomitant]

REACTIONS (7)
  - Nausea [None]
  - Muscle tightness [None]
  - Confusional state [None]
  - Respiratory arrest [None]
  - Throat tightness [None]
  - Cardio-respiratory arrest [None]
  - Drug interaction [None]
